FAERS Safety Report 9182092 (Version 1)
Quarter: 2013Q1

REPORT INFORMATION
  Report Type: Report from Study
  Country: CA (occurrence: CA)
  Receive Date: 20130322
  Receipt Date: 20130322
  Transmission Date: 20140127
  Serious: Yes (Hospitalization, Other)
  Sender: FDA-Public Use
  Company Number: CA-ABBOTT-13P-028-1064712-00

PATIENT
  Sex: Female
  Weight: 76.27 kg

DRUGS (3)
  1. HUMIRA [Suspect]
     Indication: CROHN^S DISEASE
     Route: 058
     Dates: start: 20090424
  2. HUMIRA [Suspect]
     Route: 058
     Dates: start: 20130117
  3. METHOTREXATE [Concomitant]
     Indication: PRODUCT USED FOR UNKNOWN INDICATION
     Dates: start: 200801

REACTIONS (8)
  - Inflammatory bowel disease [Unknown]
  - Drug ineffective [Unknown]
  - Inflammatory bowel disease [Recovered/Resolved]
  - Vomiting [Recovered/Resolved]
  - Gastrointestinal pain [Unknown]
  - Small intestinal obstruction [Unknown]
  - Intestinal dilatation [Unknown]
  - Distal ileal obstruction syndrome [Unknown]
